FAERS Safety Report 22109064 (Version 1)
Quarter: 2023Q1

REPORT INFORMATION
  Report Type: Report from Study
  Country: US (occurrence: US)
  Receive Date: 20230317
  Receipt Date: 20230317
  Transmission Date: 20230417
  Serious: Yes (Hospitalization)
  Sender: FDA-Public Use
  Company Number: US-ELI_LILLY_AND_COMPANY-US202303008187

PATIENT
  Sex: Female

DRUGS (1)
  1. TRULICITY [Suspect]
     Active Substance: DULAGLUTIDE
     Indication: Product used for unknown indication
     Dosage: 0.75 MG, WEEKLY (1/W)
     Route: 065
     Dates: start: 20221024

REACTIONS (7)
  - Blood glucose decreased [Unknown]
  - Thinking abnormal [Unknown]
  - Chills [Unknown]
  - Fall [Unknown]
  - Dysstasia [Unknown]
  - Malaise [Unknown]
  - Abdominal discomfort [Unknown]
